FAERS Safety Report 11840372 (Version 1)
Quarter: 2015Q4

REPORT INFORMATION
  Report Type: Spontaneous
  Country: AU (occurrence: AU)
  Receive Date: 20151216
  Receipt Date: 20151216
  Transmission Date: 20160305
  Serious: Yes (Other)
  Sender: FDA-Public Use
  Company Number: AU-SA-2015SA177967

PATIENT

DRUGS (5)
  1. PANADOL [Concomitant]
     Active Substance: ACETAMINOPHEN
     Indication: HEADACHE
  2. TEMAZEPAM. [Concomitant]
     Active Substance: TEMAZEPAM
     Indication: PREMEDICATION
  3. PANADOL [Concomitant]
     Active Substance: ACETAMINOPHEN
     Indication: PREMEDICATION
  4. TEMAZEPAM. [Concomitant]
     Active Substance: TEMAZEPAM
     Indication: SLEEP DISORDER
  5. LEMTRADA [Suspect]
     Active Substance: ALEMTUZUMAB
     Route: 041

REACTIONS (12)
  - Insomnia [Unknown]
  - Paraesthesia [Recovering/Resolving]
  - Tremor [Recovered/Resolved]
  - Chills [Recovered/Resolved]
  - Headache [Unknown]
  - Flushing [Unknown]
  - Influenza [Unknown]
  - Arthralgia [Unknown]
  - Optic neuritis [Recovering/Resolving]
  - Fatigue [Unknown]
  - Myalgia [Unknown]
  - Pruritus [Unknown]
